APPROVED DRUG PRODUCT: MEPERIDINE AND ATROPINE SULFATE
Active Ingredient: ATROPINE SULFATE; MEPERIDINE HYDROCHLORIDE
Strength: 0.4MG/ML;75MG/ML
Dosage Form/Route: INJECTABLE;INJECTION
Application: A085121 | Product #002
Applicant: WYETH AYERST LABORATORIES
Approved: Approved Prior to Jan 1, 1982 | RLD: No | RS: No | Type: DISCN